FAERS Safety Report 10607247 (Version 2)
Quarter: 2015Q1

REPORT INFORMATION
  Report Type: Spontaneous
  Country: CN (occurrence: CN)
  Receive Date: 20141125
  Receipt Date: 20150109
  Transmission Date: 20150720
  Serious: Yes (Other)
  Sender: FDA-Public Use
  Company Number: CN-BAXTER-2014BAX068623

PATIENT
  Sex: Female

DRUGS (2)
  1. LISHITONG [Suspect]
     Active Substance: FUSIDATE SODIUM
     Indication: ANTI-INFECTIVE THERAPY
     Route: 042
     Dates: start: 20141115, end: 20141115
  2. 5% GLUCOSE  INJECTION [Suspect]
     Active Substance: DEXTROSE
     Indication: PRODUCT USED FOR UNKNOWN INDICATION
     Route: 042
     Dates: start: 20141115, end: 20141115

REACTIONS (2)
  - Hyperpyrexia [Recovered/Resolved]
  - Chills [Recovered/Resolved]

NARRATIVE: CASE EVENT DATE: 20141115
